FAERS Safety Report 21074498 (Version 1)
Quarter: 2022Q3

REPORT INFORMATION
  Report Type: Other
  Country: KR (occurrence: None)
  Receive Date: 20220713
  Receipt Date: 20220713
  Transmission Date: 20221027
  Serious: Yes (Other)
  Sender: FDA-Public Use
  Company Number: KR-ROCHE-3134695

PATIENT
  Age: 55 Year
  Sex: Male

DRUGS (4)
  1. RITUXIMAB [Suspect]
     Active Substance: RITUXIMAB
     Indication: Liver transplant
     Dosage: 633 MG OF RITUXIMAB (375 MG/M2 BODY SURFACE AREA [BSA]) 3 WEEKS BEFORE THE SCHEDULED TRANS PLANTATIO
     Route: 042
  2. RITUXIMAB [Suspect]
     Active Substance: RITUXIMAB
     Dosage: BOOSTER RITUXIMAB 200 MG ON POD 2
     Route: 042
  3. MYCOPHENOLATE MOFETIL [Suspect]
     Active Substance: MYCOPHENOLATE MOFETIL
     Indication: Prophylaxis against transplant rejection
     Route: 065
  4. TACROLIMUS [Suspect]
     Active Substance: TACROLIMUS
     Indication: Prophylaxis against transplant rejection
     Dosage: PRE-LT: TROUGH 5-8 NG/DL AND POST-LT: TROUGH 8-10 NG/DL
     Route: 065

REACTIONS (2)
  - Cytomegalovirus infection [Unknown]
  - Off label use [Unknown]
